FAERS Safety Report 5031757-7 (Version None)
Quarter: 2006Q2

REPORT INFORMATION
  Report Type: 
  Country: None (occurrence: None)
  Receive Date: 20060619
  Receipt Date: 20060612
  Transmission Date: 20061013
  Serious: Yes (Disabling, Other)
  Sender: FDA-Public Use
  Company Number: 2005147349

PATIENT
  Age: 50 Year
  Sex: Female
  Weight: 53 kg

DRUGS (5)
  1. GABAPENTIN [Suspect]
     Indication: HEADACHE
     Dosage: 300 MG (100 MG, 3 IN 1 D)
     Dates: start: 20051001, end: 20051011
  2. PROPRANOLOL [Concomitant]
  3. RANITIDINE HCL [Concomitant]
  4. ACETAMINOPHEN [Concomitant]
  5. DICLOFENAC SODIUM [Concomitant]

REACTIONS (7)
  - CEREBRAL HAEMORRHAGE [None]
  - DISORIENTATION [None]
  - DYSPHASIA [None]
  - HALLUCINATION, VISUAL [None]
  - ILLUSION [None]
  - ISCHAEMIA [None]
  - VISUAL DISTURBANCE [None]
